FAERS Safety Report 13011702 (Version 1)
Quarter: 2016Q4

REPORT INFORMATION
  Report Type: Spontaneous
  Country: GR (occurrence: GR)
  Receive Date: 20161209
  Receipt Date: 20161209
  Transmission Date: 20170207
  Serious: Yes (Other)
  Sender: FDA-Public Use
  Company Number: GR-009507513-1612GRC003589

PATIENT
  Age: 50 Year
  Sex: Male

DRUGS (1)
  1. SIVEXTRO [Suspect]
     Active Substance: TEDIZOLID PHOSPHATE
     Indication: DIABETIC FOOT INFECTION
     Route: 048

REACTIONS (2)
  - Off label use [Unknown]
  - Bradycardia [Recovered/Resolved]
